FAERS Safety Report 13242238 (Version 1)
Quarter: 2017Q1

REPORT INFORMATION
  Report Type: Spontaneous
  Country: FR (occurrence: US)
  Receive Date: 20170217
  Receipt Date: 20170217
  Transmission Date: 20170428
  Serious: Yes (Death, Other)
  Sender: FDA-Public Use
  Company Number: FR-009507513-1702USA006754

PATIENT
  Age: 16 Year
  Sex: Male

DRUGS (8)
  1. IBUPROFEN. [Suspect]
     Active Substance: IBUPROFEN
  2. OXYCODONE [Suspect]
     Active Substance: OXYCODONE
  3. ACETAMINOPHEN. [Suspect]
     Active Substance: ACETAMINOPHEN
  4. PROVENTIL [Suspect]
     Active Substance: ALBUTEROL
     Dosage: UNK
  5. PREDNISONE. [Suspect]
     Active Substance: PREDNISONE
     Dosage: UNK
  6. BOTULINUM TOXIN TYPE A [Suspect]
     Active Substance: BOTULINUM TOXIN TYPE A
     Indication: MUSCLE SPASTICITY
     Dosage: UNK
  7. BACLOFEN. [Suspect]
     Active Substance: BACLOFEN
  8. CODEINE [Suspect]
     Active Substance: CODEINE

REACTIONS (4)
  - Intestinal ischaemia [Unknown]
  - Death [Fatal]
  - Respiratory failure [Unknown]
  - Dysphagia [Unknown]
